FAERS Safety Report 25601222 (Version 2)
Quarter: 2025Q3

REPORT INFORMATION
  Report Type: Report from Study
  Country: US (occurrence: US)
  Receive Date: 20250724
  Receipt Date: 20250808
  Transmission Date: 20251021
  Serious: Yes (Hospitalization, Other)
  Sender: ABBVIE
  Company Number: US-ABBVIE-6383514

PATIENT
  Age: 38 Year
  Sex: Male

DRUGS (1)
  1. HUMIRA [Suspect]
     Active Substance: ADALIMUMAB
     Indication: Psoriatic arthropathy
     Route: 058
     Dates: start: 20160303

REACTIONS (3)
  - Post procedural infection [Recovering/Resolving]
  - Blood potassium increased [Recovered/Resolved]
  - Eye prosthesis insertion [Recovering/Resolving]

NARRATIVE: CASE EVENT DATE: 20250601
